FAERS Safety Report 9992005 (Version 1)
Quarter: 2014Q1

REPORT INFORMATION
  Report Type: Spontaneous
  Country: DE (occurrence: DE)
  Receive Date: 20140310
  Receipt Date: 20140310
  Transmission Date: 20141002
  Serious: Yes (Other)
  Sender: FDA-Public Use
  Company Number: DE-JNJFOC-20140218115

PATIENT
  Sex: Female

DRUGS (2)
  1. DOXORUBICIN [Suspect]
     Indication: OVARIAN CANCER RECURRENT
     Dosage: INTRAABDOMINAL ROUTE OF ADMINISTRATION
     Route: 050
  2. CISPLATIN [Suspect]
     Indication: OVARIAN CANCER RECURRENT
     Dosage: INTRAABDOMINAL ROUTE OF ADMINISTRATION
     Route: 050

REACTIONS (4)
  - Abdominal pain [Unknown]
  - Pneumonia [Unknown]
  - Ovarian cancer [Unknown]
  - Wrong technique in drug usage process [Unknown]
